FAERS Safety Report 6752696-7 (Version None)
Quarter: 2010Q2

REPORT INFORMATION
  Report Type: 
  Country: None (occurrence: None)
  Receive Date: 20100601
  Receipt Date: 20100601
  Transmission Date: 20101027
  Serious: Yes (Other)
  Sender: FDA-Public Use
  Company Number: None

PATIENT
  Age: 50 Year
  Sex: Female
  Weight: 102.0593 kg

DRUGS (8)
  1. SAVELLA [Suspect]
     Indication: FIBROMYALGIA
     Dosage: 12.5MG X5, 25MG X 8, 50MG X 42 BID PO
     Route: 048
     Dates: start: 20100507, end: 20100510
  2. SAVELLA [Concomitant]
  3. ZYRTEC [Concomitant]
  4. HYDROCODONE BITARTRATE AND ACETAMINOPHEN [Concomitant]
  5. METHADONE [Concomitant]
  6. MIRALAX [Concomitant]
  7. PRILOSEC OTC [Concomitant]
  8. TRAZODONE HCL [Concomitant]

REACTIONS (9)
  - ANXIETY [None]
  - BURNING SENSATION [None]
  - ERYTHEMA [None]
  - HEADACHE [None]
  - HYPERHIDROSIS [None]
  - HYPERTENSION [None]
  - NAUSEA [None]
  - OEDEMA PERIPHERAL [None]
  - SWELLING FACE [None]
